FAERS Safety Report 7239328-9 (Version None)
Quarter: 2011Q1

REPORT INFORMATION
  Report Type: 
  Country: None (occurrence: None)
  Receive Date: 20110121
  Receipt Date: 20110113
  Transmission Date: 20110831
  Serious: Yes (Hospitalization)
  Sender: FDA-Public Use
  Company Number: BR-ASTRAZENECA-2010SE10036

PATIENT
  Age: 37 Year
  Sex: Female

DRUGS (2)
  1. TETREX [Concomitant]
     Indication: HYPERTHYROIDISM
     Route: 048
     Dates: start: 20050101
  2. SEROQUEL [Suspect]
     Indication: SCHIZOPHRENIA
     Route: 048
     Dates: start: 20020101, end: 20091001

REACTIONS (2)
  - SCHIZOPHRENIA SIMPLE [None]
  - BLOOD PRESSURE DECREASED [None]
